FAERS Safety Report 10283166 (Version 2)
Quarter: 2014Q3

REPORT INFORMATION
  Report Type: Spontaneous
  Country: DE (occurrence: DE)
  Receive Date: 20140708
  Receipt Date: 20140708
  Transmission Date: 20150326
  Serious: Yes (Other)
  Sender: FDA-Public Use
  Company Number: DE-AMGEN INC.-DEUSP2014045219

PATIENT
  Age: 70 Year
  Sex: Female

DRUGS (2)
  1. DEKRISTOL [Concomitant]
     Active Substance: CHOLECALCIFEROL
     Dosage: 20000 IU (1 DF), Q2WK
  2. PROLIA [Suspect]
     Active Substance: DENOSUMAB
     Indication: OSTEOPOROTIC FRACTURE
     Dosage: 60 MG, Q6MO
     Route: 058
     Dates: start: 20130418, end: 20131120

REACTIONS (15)
  - Hip arthroplasty [Unknown]
  - Spondylolisthesis [Unknown]
  - Polyarthritis [Unknown]
  - Osteoporotic fracture [Unknown]
  - Radius fracture [Unknown]
  - Myosclerosis [Unknown]
  - Nephropathy [Unknown]
  - Osteoarthritis [Unknown]
  - Somatoform disorder [Not Recovered/Not Resolved]
  - Treatment noncompliance [Unknown]
  - Thoracic vertebral fracture [Unknown]
  - Polyneuropathy [Unknown]
  - Rash pruritic [Unknown]
  - Pain [Not Recovered/Not Resolved]
  - Foot deformity [Unknown]

NARRATIVE: CASE EVENT DATE: 20140409
